FAERS Safety Report 8900960 (Version 1)
Quarter: 2012Q4

REPORT INFORMATION
  Report Type: 
  Country: AU (occurrence: AU)
  Receive Date: 20121109
  Receipt Date: 20121109
  Transmission Date: 20130627
  Serious: Yes (Death, Hospitalization)
  Sender: FDA-Public Use
  Company Number: AU-PFIZER INC-2012277583

PATIENT
  Age: 56 Year
  Sex: Male

DRUGS (3)
  1. OXALIPLATIN [Suspect]
     Indication: METASTATIC COLON CANCER
     Dosage: 240 mg, thrice weekly
     Route: 042
  2. CAPECITABINE [Suspect]
     Indication: METASTATIC COLON CANCER
     Dosage: 1500 mg, 2x/day
     Route: 048
  3. CAPECITABINE [Suspect]
     Dosage: 1500 mg, 1x/day
     Route: 048

REACTIONS (1)
  - Posterior reversible encephalopathy syndrome [Fatal]
